FAERS Safety Report 7867919-0 (Version None)
Quarter: 2011Q4

REPORT INFORMATION
  Report Type: 
  Country: None (occurrence: None)
  Receive Date: 20111028
  Receipt Date: 20111027
  Transmission Date: 20120403
  Serious: Yes (Life-Threatening, Other)
  Sender: FDA-Public Use
  Company Number: GB-ABBOTT-11P-167-0868868-00

PATIENT
  Age: 51 Year
  Sex: Female

DRUGS (1)
  1. DEPAKOTE [Suspect]
     Indication: BIPOLAR DISORDER
     Route: 065
     Dates: start: 20050101, end: 20110915

REACTIONS (16)
  - EAR INFECTION [None]
  - ASTHENIA [None]
  - HAIR DISORDER [None]
  - SWELLING [None]
  - DEAFNESS [None]
  - BREAST PAIN [None]
  - PERIPHERAL COLDNESS [None]
  - INFLUENZA LIKE ILLNESS [None]
  - SKIN BURNING SENSATION [None]
  - SKIN INFECTION [None]
  - VOMITING [None]
  - CONTUSION [None]
  - OCULAR HYPERAEMIA [None]
  - FATIGUE [None]
  - VAGINAL HAEMORRHAGE [None]
  - GAIT DISTURBANCE [None]
